FAERS Safety Report 25356028 (Version 3)
Quarter: 2025Q2

REPORT INFORMATION
  Report Type: Report from Study
  Country: US (occurrence: US)
  Receive Date: 20250525
  Receipt Date: 20250603
  Transmission Date: 20250716
  Serious: Yes (Other)
  Sender: ABBVIE
  Company Number: US-ABBVIE-6290200

PATIENT
  Age: 58 Year
  Sex: Male
  Weight: 79 kg

DRUGS (1)
  1. SKYRIZI [Suspect]
     Active Substance: RISANKIZUMAB-RZAA
     Indication: Colitis ulcerative
     Route: 058
     Dates: start: 20250216

REACTIONS (8)
  - Loss of consciousness [Unknown]
  - Syncope [Recovered/Resolved]
  - Nervousness [Recovered/Resolved]
  - Anxiety [Recovered/Resolved]
  - Fall [Recovering/Resolving]
  - Presyncope [Unknown]
  - Haemoglobin decreased [Recovering/Resolving]
  - Wrong technique in product usage process [Unknown]

NARRATIVE: CASE EVENT DATE: 20250516
